FAERS Safety Report 5320373-5 (Version None)
Quarter: 2007Q2

REPORT INFORMATION
  Report Type: 
  Country: None (occurrence: None)
  Receive Date: 20070509
  Receipt Date: 20070430
  Transmission Date: 20071010
  Serious: Yes (Hospitalization)
  Sender: FDA-Public Use
  Company Number: IT-ROCHE-495687

PATIENT
  Age: 51 Year
  Sex: Female

DRUGS (7)
  1. ROCEPHIN [Suspect]
     Indication: RESPIRATORY TRACT INFECTION
     Dosage: FORM REPORTED AS VIAL.
     Route: 030
     Dates: start: 20070327, end: 20070328
  2. CEMIRIT [Suspect]
     Indication: MYOPERICARDITIS
     Route: 048
     Dates: start: 20070313, end: 20070328
  3. TRIATEC [Suspect]
     Indication: MYOCARDITIS
     Route: 048
     Dates: start: 20070313, end: 20070328
  4. CONGESCOR [Concomitant]
     Route: 048
     Dates: start: 20070313, end: 20070424
  5. TORVAST [Concomitant]
     Dosage: FREQUENCY REPORTED AS 1X UNK.
     Route: 048
     Dates: start: 20070313, end: 20070424
  6. MEPRAL [Concomitant]
     Dosage: FREQUENCY REPORTED AS 1X UNKNOWN.
     Route: 048
     Dates: start: 20070313, end: 20070424
  7. MAALOX FAST BLOCKER [Concomitant]
     Dosage: GENERIC REPORTED AS MAGNESIUM.
     Route: 048
     Dates: start: 20070313, end: 20070424

REACTIONS (2)
  - ANGIOEDEMA [None]
  - URTICARIA [None]
